FAERS Safety Report 6023854-4 (Version None)
Quarter: 2008Q4

REPORT INFORMATION
  Report Type: 
  Country: None (occurrence: None)
  Receive Date: 20081230
  Receipt Date: 20081218
  Transmission Date: 20090506
  Serious: Yes (Other)
  Sender: FDA-Public Use
  Company Number: GB-PFIZER INC-2008157942

PATIENT

DRUGS (8)
  1. CHAMPIX [Suspect]
     Indication: SMOKING CESSATION THERAPY
     Route: 048
     Dates: start: 20081023, end: 20081127
  2. FLUTICASONE [Concomitant]
     Dosage: UNK
     Dates: start: 20081201
  3. LISINOPRIL [Concomitant]
     Dosage: UNK
     Dates: start: 20050729
  4. SALBUTAMOL SULFATE [Concomitant]
     Dosage: UNK
     Dates: start: 20050729
  5. SALMETEROL [Concomitant]
     Dosage: UNK
     Dates: start: 20081201
  6. SALMETEROL XINAFOATE [Concomitant]
     Dosage: UNK
     Dates: end: 20081128
  7. SIMVASTATIN [Concomitant]
     Dosage: UNK
     Dates: start: 20060901
  8. TIOTROPIUM BROMIDE [Concomitant]
     Dosage: UNK
     Dates: start: 20060522

REACTIONS (4)
  - ANXIETY [None]
  - DYSPHORIA [None]
  - DYSPNOEA [None]
  - RESTLESSNESS [None]
